FAERS Safety Report 6809597-5 (Version None)
Quarter: 2010Q2

REPORT INFORMATION
  Report Type: 
  Country: None (occurrence: None)
  Receive Date: 20100630
  Receipt Date: 20100623
  Transmission Date: 20101027
  Serious: Yes (Disabling)
  Sender: FDA-Public Use
  Company Number: US-B.I. PHARMACEUTICALS,INC./RIDGEFIELD-2010-BP-05571BP

PATIENT
  Age: 68 Year
  Sex: Male
  Weight: 74.4 kg

DRUGS (6)
  1. FLOMAX [Suspect]
     Indication: BENIGN PROSTATIC HYPERPLASIA
     Dosage: 0.4 MG
     Dates: start: 20061001, end: 20091001
  2. LIPITOR [Concomitant]
     Dosage: 40 MG
  3. ASPIRIN [Concomitant]
     Dosage: 81 MG
  4. AZILECT [Concomitant]
  5. SINEMET [Concomitant]
  6. LEVODOPA [Concomitant]

REACTIONS (7)
  - ABDOMINAL PAIN [None]
  - BACK PAIN [None]
  - CHEST PAIN [None]
  - FATIGUE [None]
  - PARKINSON'S DISEASE [None]
  - SOMNOLENCE [None]
  - ULCER [None]
